FAERS Safety Report 23538414 (Version 4)
Quarter: 2024Q1

REPORT INFORMATION
  Report Type: Report from Study
  Country: CA (occurrence: CA)
  Receive Date: 20240219
  Receipt Date: 20240326
  Transmission Date: 20240410
  Serious: Yes (Other)
  Sender: FDA-Public Use
  Company Number: CA-BAUSCH-BL-2023-011912

PATIENT
  Age: 51 Year
  Sex: Male

DRUGS (3)
  1. SILIQ [Suspect]
     Active Substance: BRODALUMAB
     Indication: Psoriasis
     Dosage: 210MG/1.5ML, WEEKLY (WEEK 0 TO WEEK 2)
     Route: 058
     Dates: start: 20230801, end: 20230816
  2. SILIQ [Suspect]
     Active Substance: BRODALUMAB
     Dosage: 210MG/1.5ML, Q 2 WEEKS
     Route: 058
     Dates: start: 2023, end: 2023
  3. SILIQ [Suspect]
     Active Substance: BRODALUMAB
     Dosage: 210MG/1.5ML, Q 4 WEEKS, OFF LABEL
     Route: 058
     Dates: start: 2023

REACTIONS (14)
  - Nephrolithiasis [Unknown]
  - Ear haemorrhage [Unknown]
  - Dry skin [Unknown]
  - Pollakiuria [Unknown]
  - Dizziness [Not Recovered/Not Resolved]
  - Pruritus [Unknown]
  - Ear pruritus [Unknown]
  - Skin discolouration [Unknown]
  - Nasopharyngitis [Unknown]
  - Fatigue [Unknown]
  - Influenza like illness [Unknown]
  - Headache [Unknown]
  - Pain in extremity [Not Recovered/Not Resolved]
  - Off label use [Unknown]

NARRATIVE: CASE EVENT DATE: 20230101
